FAERS Safety Report 21006178 (Version 1)
Quarter: 2022Q2

REPORT INFORMATION
  Report Type: Report from Study
  Country: US (occurrence: US)
  Receive Date: 20220624
  Receipt Date: 20220624
  Transmission Date: 20220721
  Serious: Yes (Hospitalization, Other)
  Sender: FDA-Public Use
  Company Number: US-TAKEDA-2022TUS040523

PATIENT
  Sex: Female

DRUGS (1)
  1. HUMAN IMMUNOGLOBULIN G [Suspect]
     Active Substance: HUMAN IMMUNOGLOBULIN G
     Indication: Primary immunodeficiency syndrome
     Dosage: 40 GRAM, MONTHLY
     Route: 042

REACTIONS (11)
  - Pneumonia [Unknown]
  - Syncope [Unknown]
  - Facial bones fracture [Unknown]
  - Illness [Unknown]
  - Shoulder operation [Unknown]
  - Candida infection [Unknown]
  - Fatigue [Unknown]
  - Tooth injury [Unknown]
  - Laryngitis [Unknown]
  - Therapy interrupted [Unknown]
  - Insurance issue [Unknown]

NARRATIVE: CASE EVENT DATE: 20000101
